FAERS Safety Report 17353870 (Version 1)
Quarter: 2020Q1

REPORT INFORMATION
  Report Type: Spontaneous
  Country: US (occurrence: US)
  Receive Date: 20200130
  Receipt Date: 20200130
  Transmission Date: 20200409
  Serious: Yes (Death)
  Sender: FDA-Public Use
  Company Number: None

PATIENT
  Sex: Female

DRUGS (6)
  1. SAMSCA [Suspect]
     Active Substance: TOLVAPTAN
     Route: 048
     Dates: start: 20191204, end: 20200104
  2. FUROSEMIDE 20MG [Concomitant]
     Active Substance: FUROSEMIDE
     Dates: start: 20191215, end: 20200115
  3. PREDNISONE 20MG [Concomitant]
     Active Substance: PREDNISONE
     Dates: start: 20191009, end: 20191205
  4. POTASSIUM CL 20 MEQ ER [Concomitant]
     Dates: start: 20191215, end: 20200115
  5. AMLODIPINE BESYLATE 5MG [Concomitant]
     Active Substance: AMLODIPINE BESYLATE
     Dates: start: 20191215, end: 20200115
  6. VALACYCLOVIR 500 MG [Concomitant]
     Active Substance: VALACYCLOVIR HYDROCHLORIDE
     Dates: start: 20191106, end: 20191129

REACTIONS (1)
  - Death [None]
